FAERS Safety Report 5479375-0 (Version None)
Quarter: 2007Q4

REPORT INFORMATION
  Report Type: 
  Country: None (occurrence: None)
  Receive Date: 20071008
  Receipt Date: 20071003
  Transmission Date: 20080405
  Serious: Yes (Life-Threatening)
  Sender: FDA-Public Use
  Company Number: AT-WYE-G00417507

PATIENT
  Sex: Female
  Weight: 66 kg

DRUGS (9)
  1. TEMSIROLIMUS [Suspect]
     Indication: RENAL CELL CARCINOMA STAGE UNSPECIFIED
     Dosage: 25 MG
     Route: 042
     Dates: start: 20070906, end: 20070906
  2. TEMSIROLIMUS [Suspect]
     Dosage: 25 MG
     Route: 042
     Dates: start: 20070913, end: 20070913
  3. ULSAL [Concomitant]
     Dosage: ONE AMPULLE APPROXIMATELY 1.5 HOURS PRIOR TO TEMSIROLIMUS ADMINISTRATION
     Dates: start: 20070906, end: 20070906
  4. ULSAL [Concomitant]
     Dosage: ONE AMPULLE APPROXIMATELY 1.5 HOURS PRIOR TO TEMSIROLIMUS ADMINISTRATION
     Dates: start: 20070913, end: 20070913
  5. FORTECORTIN [Concomitant]
     Dates: start: 20070906, end: 20070913
  6. FENISTIL [Concomitant]
     Dosage: TWO AMPULLES APPROXIMATELY 1.5 HOURS PRIOR TO TEMSIROLIMUS ADMINISTRATION
     Dates: start: 20070906, end: 20070906
  7. FENISTIL [Concomitant]
     Dosage: TWO AMPULLES APPROXIMATELY 1.5 HOURS PRIOR TO TEMSIROLIMUS ADMINISTRATION
     Dates: start: 20070913, end: 20070913
  8. UROSIN [Concomitant]
  9. EUTHYROX [Concomitant]

REACTIONS (3)
  - CYANOSIS [None]
  - DYSPNOEA [None]
  - LOSS OF CONSCIOUSNESS [None]
